FAERS Safety Report 4286221-X (Version None)
Quarter: 2004Q1

REPORT INFORMATION
  Report Type: 
  Country: None (occurrence: None)
  Receive Date: 20040114
  Receipt Date: 20031105
  Transmission Date: 20041129
  Serious: Yes (Other)
  Sender: FDA-Public Use
  Company Number: 350944

PATIENT
  Sex: Female

DRUGS (3)
  1. ROCEPHIN [Suspect]
     Indication: DRUG USE FOR UNKNOWN INDICATION
  2. PAXIL [Suspect]
     Indication: DRUG USE FOR UNKNOWN INDICATION
  3. CLARITIN [Suspect]
     Indication: DRUG USE FOR UNKNOWN INDICATION
     Route: 048

REACTIONS (5)
  - ANAPHYLACTIC REACTION [None]
  - DRUG INTERACTION [None]
  - HEART RATE INCREASED [None]
  - HYPERHIDROSIS [None]
  - PRURITUS [None]
